FAERS Safety Report 11213028 (Version 2)
Quarter: 2015Q3

REPORT INFORMATION
  Report Type: Spontaneous
  Country: US (occurrence: US)
  Receive Date: 20150623
  Receipt Date: 20150805
  Transmission Date: 20151125
  Serious: Yes (Hospitalization)
  Sender: FDA-Public Use
  Company Number: US-PFIZER INC-2015205928

PATIENT
  Age: 62 Year
  Sex: Male
  Weight: 79 kg

DRUGS (9)
  1. LYRICA [Suspect]
     Active Substance: PREGABALIN
     Indication: NEURALGIA
     Dosage: 75 MG, 2X/DAY
     Route: 048
     Dates: start: 201504, end: 20150528
  2. LYRICA [Suspect]
     Active Substance: PREGABALIN
     Indication: NERVE INJURY
     Dosage: 150 MG, 2X/DAY
     Route: 048
     Dates: start: 20150528
  3. PRAVASTATIN [Concomitant]
     Active Substance: PRAVASTATIN\PRAVASTATIN SODIUM
     Dosage: UNK
  4. CITALOPRAM [Concomitant]
     Active Substance: CITALOPRAM HYDROBROMIDE
     Indication: DEPRESSED MOOD
     Dosage: 20 MG, 1X/DAY
     Route: 048
     Dates: end: 201504
  5. LEVOTHYROXINE. [Concomitant]
     Active Substance: LEVOTHYROXINE
     Dosage: UNK
  6. TAMSULOSINE [Concomitant]
     Active Substance: TAMSULOSIN HYDROCHLORIDE
     Dosage: UNK
  7. TAMSULOSINE [Concomitant]
     Active Substance: TAMSULOSIN HYDROCHLORIDE
     Dosage: 2 DF, 1X/DAY, AT NIGHT
  8. LYRICA [Suspect]
     Active Substance: PREGABALIN
     Dosage: (400)
     Dates: start: 20150315
  9. PRAVASTATIN [Concomitant]
     Active Substance: PRAVASTATIN\PRAVASTATIN SODIUM
     Dosage: 40 MG, 1X/DAY
     Route: 048

REACTIONS (3)
  - Nerve injury [Not Recovered/Not Resolved]
  - Hypoaesthesia [Not Recovered/Not Resolved]
  - Sexual dysfunction [Not Recovered/Not Resolved]

NARRATIVE: CASE EVENT DATE: 201504
